FAERS Safety Report 20149647 (Version 1)
Quarter: 2021Q4

REPORT INFORMATION
  Report Type: Spontaneous
  Country: US (occurrence: US)
  Receive Date: 20211206
  Receipt Date: 20211206
  Transmission Date: 20220303
  Serious: No
  Sender: FDA-Public Use
  Company Number: US-AMGEN-USASP2021186872

PATIENT
  Age: 55 Year
  Sex: Male

DRUGS (3)
  1. RITUXIMAB [Suspect]
     Active Substance: RITUXIMAB
     Indication: Basedow^s disease
     Dosage: 750 MG PER SQUARE METER, Q2WK
     Route: 042
  2. DEXAMETHASONE [Concomitant]
     Active Substance: DEXAMETHASONE
     Indication: Basedow^s disease
     Dosage: 40 MILLIGRAM, QD FOR 4 DAYS (REPEATED EVERY 4 WEEKS FOR 12 MONTHS
     Route: 048
  3. CYCLOPHOSPHAMIDE [Concomitant]
     Active Substance: CYCLOPHOSPHAMIDE
     Indication: Basedow^s disease
     Dosage: 100 MILLIGRAM, QD FOR 12 MONTHS
     Route: 048

REACTIONS (3)
  - Lymphopenia [Unknown]
  - Drug effective for unapproved indication [Unknown]
  - Off label use [Unknown]
